FAERS Safety Report 4347005-7 (Version None)
Quarter: 2004Q1

REPORT INFORMATION
  Report Type: 
  Country: None (occurrence: None)
  Receive Date: 20040329
  Receipt Date: 20040212
  Transmission Date: 20041129
  Serious: No
  Sender: FDA-Public Use
  Company Number: USA040259268

PATIENT
  Sex: Male
  Weight: 41 kg

DRUGS (1)
  1. STRATTERA [Suspect]
     Dosage: 80 MG/DAY

REACTIONS (1)
  - PRESCRIBED OVERDOSE [None]
